FAERS Safety Report 6347434-6 (Version None)
Quarter: 2009Q3

REPORT INFORMATION
  Report Type: 
  Country: None (occurrence: None)
  Receive Date: 20090910
  Receipt Date: 20090901
  Transmission Date: 20100115
  Serious: Yes (Hospitalization, Other)
  Sender: FDA-Public Use
  Company Number: DE-AVENTIS-200912207DE

PATIENT
  Age: 74 Year
  Sex: Male

DRUGS (7)
  1. TAXOTERE [Suspect]
     Route: 042
     Dates: start: 20090520, end: 20090724
  2. CODE UNBROKEN [Suspect]
     Route: 048
     Dates: start: 20090520, end: 20090712
  3. FENTANYL [Concomitant]
     Indication: DRUG USE FOR UNKNOWN INDICATION
     Dosage: DOSE: NOT REPORTED
     Dates: start: 20090401
  4. ENADURA PLUS [Concomitant]
     Indication: DRUG USE FOR UNKNOWN INDICATION
     Dosage: DOSE: NOT REPORTED
     Dates: start: 20040101
  5. PANTOZOL                           /01263202/ [Concomitant]
     Indication: DRUG USE FOR UNKNOWN INDICATION
     Dosage: DOSE: NOT REPORTED
     Dates: start: 20090526
  6. PREDNISONE TAB [Concomitant]
     Dosage: DOSE: NOT REPORTED
  7. DEXAMETHASONE [Concomitant]
     Dosage: DOSE: NOT REPORTED

REACTIONS (4)
  - ANAEMIA [None]
  - ANXIETY [None]
  - LEUKOPENIA [None]
  - SYNCOPE [None]
